FAERS Safety Report 24186880 (Version 1)
Quarter: 2024Q3

REPORT INFORMATION
  Report Type: Spontaneous
  Country: TR (occurrence: TR)
  Receive Date: 20240808
  Receipt Date: 20240808
  Transmission Date: 20241017
  Serious: Yes (Death, Hospitalization)
  Sender: NOVITIUM PHARMA
  Company Number: TR-NOVITIUMPHARMA-2024TRNVP01503

PATIENT
  Age: 72 Year
  Sex: Male

DRUGS (3)
  1. PREDNISONE [Suspect]
     Active Substance: PREDNISONE
     Indication: Pemphigoid
  2. OMALIZUMAB [Concomitant]
     Active Substance: OMALIZUMAB
     Indication: Pemphigoid
  3. DOXYCYCLINE [Concomitant]
     Active Substance: DOXYCYCLINE\DOXYCYCLINE HYCLATE
     Indication: Product used for unknown indication

REACTIONS (2)
  - Condition aggravated [Fatal]
  - Drug ineffective [Unknown]
